FAERS Safety Report 5418571-5 (Version None)
Quarter: 2007Q3

REPORT INFORMATION
  Report Type: 
  Country: None (occurrence: None)
  Receive Date: 20070817
  Receipt Date: 20070808
  Transmission Date: 20080115
  Serious: Yes (Death)
  Sender: FDA-Public Use
  Company Number: JP-SHR-JP-2007-030026

PATIENT
  Age: 66 Year
  Sex: Male

DRUGS (7)
  1. SOTALOL HCL [Suspect]
     Indication: VENTRICULAR TACHYCARDIA
     Dosage: 40 MG, UNK
     Route: 048
     Dates: start: 20070425, end: 20070427
  2. VALSARTAN [Concomitant]
     Dosage: UNK, UNK
     Route: 048
     Dates: start: 20061122, end: 20070427
  3. VASOLAN [Concomitant]
     Dosage: UNK, UNK
     Route: 048
     Dates: start: 20061122, end: 20070427
  4. PLAVIX [Concomitant]
     Dosage: UNK, UNK
     Route: 048
     Dates: start: 20061122, end: 20070427
  5. DIART [Concomitant]
     Dosage: UNK, UNK
     Route: 048
     Dates: start: 20061122, end: 20070427
  6. ALDACTONE [Concomitant]
     Dosage: UNK, UNK
     Route: 048
     Dates: start: 20061122, end: 20070427
  7. AMIODARONE HCL [Concomitant]
     Dates: end: 20070425

REACTIONS (1)
  - CARDIOGENIC SHOCK [None]
